FAERS Safety Report 11528801 (Version 6)
Quarter: 2019Q3

REPORT INFORMATION
  Report Type: Spontaneous
  Country: US (occurrence: US)
  Receive Date: 20150921
  Receipt Date: 20190823
  Transmission Date: 20191004
  Serious: Yes (Other)
  Sender: FDA-Public Use
  Company Number: US-PFIZER INC-2015306640

PATIENT
  Age: 49 Year
  Sex: Female
  Weight: 65 kg

DRUGS (2)
  1. LYRICA [Suspect]
     Active Substance: PREGABALIN
     Indication: FIBROMYALGIA
     Dosage: 300 MG, 2X/DAY
     Route: 048
     Dates: start: 2008
  2. LYRICA [Suspect]
     Active Substance: PREGABALIN
     Dosage: 300 MG, 2X/DAY (1 CAPSULE EVERY 12 HOURS)
     Route: 048
     Dates: start: 2010

REACTIONS (12)
  - Off label use [Unknown]
  - Withdrawal syndrome [Not Recovered/Not Resolved]
  - Hypoacusis [Unknown]
  - Sinus disorder [Unknown]
  - Product dose omission [Unknown]
  - Deafness [Unknown]
  - Intentional product misuse [Unknown]
  - Product use issue [Unknown]
  - Nausea [Not Recovered/Not Resolved]
  - Feeling abnormal [Unknown]
  - Diarrhoea [Not Recovered/Not Resolved]
  - Vomiting [Unknown]

NARRATIVE: CASE EVENT DATE: 2008
